FAERS Safety Report 13555189 (Version 2)
Quarter: 2017Q2

REPORT INFORMATION
  Report Type: Spontaneous
  Country: DE (occurrence: DE)
  Receive Date: 20170517
  Receipt Date: 20170523
  Transmission Date: 20170830
  Serious: Yes (Hospitalization, Other)
  Sender: FDA-Public Use
  Company Number: DE-SA-2017SA087422

PATIENT
  Age: 9 Week
  Sex: Male

DRUGS (1)
  1. GLIBENCLAMIDE [Suspect]
     Active Substance: GLYBURIDE
     Indication: NEONATAL DIABETES MELLITUS
     Route: 065

REACTIONS (3)
  - Jaundice cholestatic [Recovered/Resolved]
  - Cholestasis [Recovered/Resolved]
  - Congenital absence of bile ducts [Recovering/Resolving]
